FAERS Safety Report 24139019 (Version 1)
Quarter: 2024Q3

REPORT INFORMATION
  Report Type: Spontaneous
  Country: US (occurrence: US)
  Receive Date: 20240726
  Receipt Date: 20240726
  Transmission Date: 20241017
  Serious: No
  Sender: BLUEPRINT MEDICINES
  Company Number: US-Blueprint Medicines Corporation-4252

PATIENT
  Sex: Female

DRUGS (2)
  1. AYVAKIT [Suspect]
     Active Substance: AVAPRITINIB
     Indication: Systemic mastocytosis
     Route: 065
     Dates: start: 20210828
  2. KINERET [Concomitant]
     Active Substance: ANAKINRA
     Indication: Rheumatoid arthritis
     Dosage: 100MG ONCE DAILY ALTERNATING WITH 200MG DAILY
     Route: 065
     Dates: start: 202007

REACTIONS (1)
  - Illness [Unknown]
